FAERS Safety Report 18856057 (Version 3)
Quarter: 2021Q1

REPORT INFORMATION
  Report Type: Spontaneous
  Country: US (occurrence: US)
  Receive Date: 20210206
  Receipt Date: 20210319
  Transmission Date: 20210420
  Serious: Yes (Other)
  Sender: FDA-Public Use
  Company Number: US-009507513-2102USA000040

PATIENT
  Age: 74 Year
  Sex: Male

DRUGS (11)
  1. ZINPLAVA [Suspect]
     Active Substance: BEZLOTOXUMAB
     Indication: CLOSTRIDIUM DIFFICILE INFECTION
     Dosage: UNK
     Route: 042
     Dates: start: 20210121, end: 20210128
  2. METOPROLOL. [Concomitant]
     Active Substance: METOPROLOL
  3. LORAZEPAM. [Concomitant]
     Active Substance: LORAZEPAM
  4. ASPIRIN. [Concomitant]
     Active Substance: ASPIRIN
  5. PAROXETINE. [Concomitant]
     Active Substance: PAROXETINE
  6. MELATONIN [Concomitant]
     Active Substance: MELATONIN
  7. PRINIVIL [Concomitant]
     Active Substance: LISINOPRIL
  8. COLESTIPOL HYDROCHLORIDE. [Concomitant]
     Active Substance: COLESTIPOL HYDROCHLORIDE
  9. DIFICID [Concomitant]
     Active Substance: FIDAXOMICIN
  10. PAXIL [Concomitant]
     Active Substance: PAROXETINE HYDROCHLORIDE
  11. DUPIXENT [Concomitant]
     Active Substance: DUPILUMAB

REACTIONS (2)
  - Diarrhoea [Recovering/Resolving]
  - Clostridium difficile colitis [Not Recovered/Not Resolved]

NARRATIVE: CASE EVENT DATE: 202101
